FAERS Safety Report 9408032 (Version 1)
Quarter: 2013Q3

REPORT INFORMATION
  Report Type: Spontaneous
  Country: US (occurrence: None)
  Receive Date: 20130717
  Receipt Date: 20130717
  Transmission Date: 20140515
  Serious: Yes (Hospitalization)
  Sender: FDA-Public Use
  Company Number: None

PATIENT
  Age: 25 Year
  Sex: Male

DRUGS (1)
  1. NITROUS OXIDE [Suspect]
     Indication: ASTHENIA
     Dosage: THREE TIMES PER WEEK PRIOR TO WORKOUT

REACTIONS (1)
  - Rhabdomyolysis [None]
